FAERS Safety Report 6753043-7 (Version None)
Quarter: 2010Q2

REPORT INFORMATION
  Report Type: 
  Country: None (occurrence: None)
  Receive Date: 20100602
  Receipt Date: 20100602
  Transmission Date: 20101027
  Serious: No
  Sender: FDA-Public Use
  Company Number: None

PATIENT
  Age: 70 Year
  Sex: Female
  Weight: 58.9676 kg

DRUGS (1)
  1. GLUCOPHAGE [Suspect]
     Dosage: 2 X 500 MG PER DAY
     Dates: start: 20100424, end: 20100504

REACTIONS (5)
  - ARTHRALGIA [None]
  - DIZZINESS [None]
  - FATIGUE [None]
  - PAIN IN EXTREMITY [None]
  - VISION BLURRED [None]
